FAERS Safety Report 17122455 (Version 1)
Quarter: 2019Q4

REPORT INFORMATION
  Report Type: Spontaneous
  Country: IT (occurrence: IT)
  Receive Date: 20191206
  Receipt Date: 20191206
  Transmission Date: 20200122
  Serious: Yes (Other)
  Sender: FDA-Public Use
  Company Number: IT-PFIZER INC-2019521411

PATIENT
  Age: 43 Year
  Sex: Female

DRUGS (6)
  1. TAVOR (LORAZEPAM) [Suspect]
     Active Substance: LORAZEPAM
     Dosage: 20 DF, TOTAL
     Route: 048
     Dates: start: 20191016, end: 20191016
  2. EFEXOR [Suspect]
     Active Substance: VENLAFAXINE HYDROCHLORIDE
     Dosage: 2.3 G, TOTAL
     Route: 048
     Dates: start: 20191015, end: 20191016
  3. XANAX [Suspect]
     Active Substance: ALPRAZOLAM
     Dosage: 20 DF, TOTAL
     Route: 048
     Dates: start: 20191016, end: 20191016
  4. NORVASC [Concomitant]
     Active Substance: AMLODIPINE BESYLATE
     Dosage: UNK
     Route: 048
  5. FLUTIFORMO [Concomitant]
     Active Substance: FLUTICASONE PROPIONATE\FORMOTEROL FUMARATE
     Dosage: UNK
     Route: 055
  6. IVABRADINE [Concomitant]
     Active Substance: IVABRADINE
     Dosage: 5 MG, UNK
     Route: 048

REACTIONS (4)
  - Sopor [Recovering/Resolving]
  - Hypokinesia [Recovering/Resolving]
  - Drug abuse [Recovering/Resolving]
  - Bradyphrenia [Recovering/Resolving]

NARRATIVE: CASE EVENT DATE: 20191016
